FAERS Safety Report 5798144-5 (Version None)
Quarter: 2008Q3

REPORT INFORMATION
  Report Type: 
  Country: None (occurrence: None)
  Receive Date: 20080702
  Receipt Date: 20080630
  Transmission Date: 20090109
  Serious: Yes (Other)
  Sender: FDA-Public Use
  Company Number: A0735273A

PATIENT
  Age: 64 Year
  Sex: Female

DRUGS (3)
  1. ALLI [Suspect]
     Dates: start: 20070601
  2. VITAMINS [Concomitant]
  3. PROPRANOLOL [Concomitant]

REACTIONS (1)
  - HEPATIC ENZYME INCREASED [None]
